FAERS Safety Report 4360570-9 (Version None)
Quarter: 2004Q2

REPORT INFORMATION
  Report Type: 
  Country: None (occurrence: None)
  Receive Date: 20040519
  Receipt Date: 20040511
  Transmission Date: 20050107
  Serious: Yes (Other)
  Sender: FDA-Public Use
  Company Number: US-ROCHE-367530

PATIENT
  Age: 56 Year
  Sex: Female

DRUGS (4)
  1. XENICAL [Suspect]
     Indication: DRUG USE FOR UNKNOWN INDICATION
     Route: 048
  2. GLUCOPHAGE [Concomitant]
     Dosage: DRUG NAME REPORTED AS GLUCOPHAGE XR. DRUG WAS DISCONTINUED AND THEN RESTARTED AFTER THE ADVERSE EVE+
     Route: 048
  3. GLUCOTROL [Concomitant]
     Dosage: DRUG NAME REPORTED AS GLUCOTROL XL. DRUG WAS DISCONTINUED AND THEN RESTARTED AFTER THE ADVERSE EVEN+
     Route: 048
  4. INSULIN [Concomitant]
     Dosage: DRUG WAS DISCONTINUED AND THEN RESTARTED AFTER THE ADVERSE EVENT.
     Route: 058

REACTIONS (2)
  - DIABETES MELLITUS [None]
  - WEIGHT DECREASED [None]
